FAERS Safety Report 4543033-7 (Version None)
Quarter: 2005Q1

REPORT INFORMATION
  Report Type: 
  Country: None (occurrence: None)
  Receive Date: 20050103
  Receipt Date: 20041117
  Transmission Date: 20050727
  Serious: Yes (Hospitalization, Other)
  Sender: FDA-Public Use
  Company Number: PHBS2004JP15497

PATIENT
  Age: 62 Year
  Sex: Male

DRUGS (2)
  1. TEGRETOL [Suspect]
     Indication: TRIGEMINAL NEURALGIA
     Dosage: 600 MG/DAY
     Route: 048
     Dates: start: 19911111, end: 19980509
  2. TEGRETOL [Suspect]
     Dosage: 800 MG/DAY
     Route: 048
     Dates: start: 19980510, end: 19980525

REACTIONS (2)
  - FEELING ABNORMAL [None]
  - SINUS ARREST [None]
